FAERS Safety Report 5192620-4 (Version None)
Quarter: 2006Q4

REPORT INFORMATION
  Report Type: 
  Country: None (occurrence: None)
  Receive Date: 20061220
  Receipt Date: 20061211
  Transmission Date: 20070319
  Serious: Yes (Death, Other)
  Sender: FDA-Public Use
  Company Number: 2005143250

PATIENT
  Age: 40 Year
  Sex: Female

DRUGS (5)
  1. NEURONTIN [Suspect]
     Indication: BIPOLAR DISORDER
     Dosage: 1800 MG (600 MG, 3 IN 1 D), ORAL
     Route: 048
     Dates: start: 19981123
  2. CARBON MONOXIDE (CARBON MONOXIDE) [Suspect]
  3. XANAX [Concomitant]
  4. KLONOPIN [Concomitant]
  5. WELLBUTRIN [Concomitant]

REACTIONS (3)
  - CARBON MONOXIDE POISONING [None]
  - COMPLETED SUICIDE [None]
  - DRUG INEFFECTIVE [None]
